FAERS Safety Report 16934019 (Version 2)
Quarter: 2019Q4

REPORT INFORMATION
  Report Type: Spontaneous
  Country: US (occurrence: US)
  Receive Date: 20191018
  Receipt Date: 20191118
  Transmission Date: 20200122
  Serious: Yes (Other)
  Sender: FDA-Public Use
  Company Number: US-009507513-1910USA010689

PATIENT
  Age: 38 Year
  Sex: Female

DRUGS (3)
  1. ISOTRETINOIN. [Suspect]
     Active Substance: ISOTRETINOIN
  2. TEMODAR [Suspect]
     Active Substance: TEMOZOLOMIDE
     Dosage: LOW DOSE
     Route: 048
  3. TEMODAR [Suspect]
     Active Substance: TEMOZOLOMIDE
     Indication: GLIOBLASTOMA
     Dosage: 16 CYCLES
     Route: 048

REACTIONS (1)
  - Undifferentiated sarcoma [Unknown]
